FAERS Safety Report 4336638-X (Version None)
Quarter: 2004Q2

REPORT INFORMATION
  Report Type: 
  Country: None (occurrence: None)
  Receive Date: 20040412
  Receipt Date: 20040402
  Transmission Date: 20050107
  Serious: Yes (Hospitalization)
  Sender: FDA-Public Use
  Company Number: JP-MERCK-0404USA00250

PATIENT
  Age: 2 Year
  Sex: Female
  Weight: 14 kg

DRUGS (1)
  1. TIMOPTIC [Suspect]
     Indication: ACCIDENTAL EXPOSURE
     Route: 048
     Dates: start: 20040402, end: 20040402

REACTIONS (5)
  - ACCIDENTAL EXPOSURE [None]
  - HYPERHIDROSIS [None]
  - HYPOTHERMIA [None]
  - MEDICATION ERROR [None]
  - METABOLIC ACIDOSIS [None]
